FAERS Safety Report 11668304 (Version 1)
Quarter: 2015Q4

REPORT INFORMATION
  Report Type: Spontaneous
  Country: US (occurrence: US)
  Receive Date: 20151027
  Receipt Date: 20151027
  Transmission Date: 20160304
  Serious: No
  Sender: FDA-Public Use
  Company Number: US-UCBSA-2015026305

PATIENT
  Sex: Female

DRUGS (1)
  1. KU-METHYLPHENIDATE HYDROCHLORIDE [Suspect]
     Active Substance: METHYLPHENIDATE HYDROCHLORIDE
     Indication: PRODUCT USED FOR UNKNOWN INDICATION
     Dosage: 54 UNK, UNK
     Route: 048

REACTIONS (2)
  - Euphoric mood [Not Recovered/Not Resolved]
  - Headache [Not Recovered/Not Resolved]
